FAERS Safety Report 9020341 (Version 1)
Quarter: 2013Q1

REPORT INFORMATION
  Report Type: Spontaneous
  Country: US (occurrence: US)
  Receive Date: 20130119
  Receipt Date: 20130119
  Transmission Date: 20140127
  Serious: No
  Sender: FDA-Public Use
  Company Number: US-ALLERGAN-1208940US

PATIENT
  Age: 47 Year
  Sex: Female

DRUGS (7)
  1. BOTOX? [Suspect]
     Indication: MIGRAINE
     Dosage: UNK UNITS
     Dates: start: 20120606, end: 20120606
  2. LIPITOR [Concomitant]
     Indication: BLOOD CHOLESTEROL INCREASED
     Dosage: UNK
  3. ATENOLOL [Concomitant]
     Indication: MIGRAINE
     Dosage: UNK
  4. BIRTH CONTROL PILLS [Concomitant]
     Indication: HORMONE LEVEL ABNORMAL
     Dosage: UNK
  5. ESTER C                            /00008001/ [Concomitant]
  6. COMPLIMENTARY MEDICATIONS UNSPECIFIED [Concomitant]
  7. KLONOPIN [Concomitant]
     Indication: MIGRAINE

REACTIONS (6)
  - Back pain [Unknown]
  - Skin tightness [Not Recovered/Not Resolved]
  - Facial paresis [Recovering/Resolving]
  - Eyelid ptosis [Not Recovered/Not Resolved]
  - Therapeutic response decreased [Unknown]
  - Eyelid oedema [Recovering/Resolving]
